FAERS Safety Report 6089777-X (Version None)
Quarter: 2009Q1

REPORT INFORMATION
  Report Type: 
  Country: None (occurrence: None)
  Receive Date: 20090220
  Receipt Date: 20090206
  Transmission Date: 20090719
  Serious: Yes (Hospitalization)
  Sender: FDA-Public Use
  Company Number: 430008M09USA

PATIENT
  Age: 82 Year
  Sex: Male
  Weight: 67 kg

DRUGS (20)
  1. NOVANTRONE [Suspect]
     Indication: PROSTATE CANCER METASTATIC
     Dosage: 23 MG, 1 IN 21 DAYS, INTRAVENOUS
     Route: 042
     Dates: start: 20081120, end: 20090102
  2. CETUXIMAB (CETUXIMAB) [Suspect]
     Indication: PROSTATE CANCER METASTATIC
     Dosage: NOT APPLICABLE
  3. ALLOPURINOL [Suspect]
     Indication: MYALGIA
     Dates: start: 20090131
  4. VITAMIN E [Concomitant]
  5. CENTRUM SILVER (CENTRUM SILVER) [Concomitant]
  6. MEVACOR [Concomitant]
  7. TYLENOL (COTYLENOL) [Concomitant]
  8. ACETYLSALICYLIC ACID SRT [Concomitant]
  9. OSTEOBIFLEX (OSTEO BI-FLEX) [Concomitant]
  10. PRILOSEC [Concomitant]
  11. DARVOCET [Concomitant]
  12. ATIVAN [Concomitant]
  13. COMPAZINE [Concomitant]
  14. CHROMAGEN (CHROMAGEN) [Concomitant]
  15. MEGACE [Concomitant]
  16. LORAZEPAM [Concomitant]
  17. PREDNISONE TAB [Concomitant]
  18. ASPIRIN [Concomitant]
  19. OXYCODONE HCL [Concomitant]
  20. AMLODIPINE BESYLATE [Concomitant]

REACTIONS (16)
  - ADRENAL NEOPLASM [None]
  - ASTHENIA [None]
  - BILE DUCT OBSTRUCTION [None]
  - BIOPSY LIVER ABNORMAL [None]
  - BLOOD BICARBONATE DECREASED [None]
  - BLOOD PRESSURE SYSTOLIC INCREASED [None]
  - BODY TEMPERATURE DECREASED [None]
  - HAEMOGLOBIN DECREASED [None]
  - HEART RATE INCREASED [None]
  - HEART RATE IRREGULAR [None]
  - MALIGNANT NEOPLASM PROGRESSION [None]
  - METASTASES TO LIVER [None]
  - MUSCULAR WEAKNESS [None]
  - MYALGIA [None]
  - PLATELET COUNT DECREASED [None]
  - POLYDIPSIA [None]
